FAERS Safety Report 18962601 (Version 5)
Quarter: 2022Q2

REPORT INFORMATION
  Report Type: Report from Study
  Country: IT (occurrence: IT)
  Receive Date: 20210303
  Receipt Date: 20220601
  Transmission Date: 20220721
  Serious: Yes (Hospitalization)
  Sender: FDA-Public Use
  Company Number: PHHO2019IT007920

PATIENT
  Age: 52 Year
  Sex: Female
  Weight: 91 kg

DRUGS (14)
  1. CAPMATINIB [Suspect]
     Active Substance: CAPMATINIB
     Indication: Triple negative breast cancer
     Dosage: 200 MG, BID
     Route: 048
     Dates: start: 20190619, end: 20190730
  2. CAPMATINIB [Suspect]
     Active Substance: CAPMATINIB
     Dosage: 200 MG, BID
     Route: 048
     Dates: start: 20190814
  3. SPARTALIZUMAB [Suspect]
     Active Substance: SPARTALIZUMAB
     Indication: Triple negative breast cancer
     Dosage: 400 MG, Q4W
     Route: 042
     Dates: start: 20190619, end: 20190717
  4. SPARTALIZUMAB [Suspect]
     Active Substance: SPARTALIZUMAB
     Dosage: 400 MG, Q4W
     Route: 042
     Dates: start: 20190814
  5. IERAMILIMAB [Suspect]
     Active Substance: IERAMILIMAB
     Indication: Triple negative breast cancer
     Dosage: 600 MG, Q4W
     Route: 042
     Dates: start: 20190619, end: 20190717
  6. IERAMILIMAB [Suspect]
     Active Substance: IERAMILIMAB
     Dosage: 600 MG, Q4W
     Route: 042
     Dates: start: 20190814
  7. PREGABALIN [Concomitant]
     Active Substance: PREGABALIN
     Indication: Breast pain
     Dosage: UNK
     Route: 065
     Dates: start: 20190619
  8. PANTOPRAZOLE [Concomitant]
     Active Substance: PANTOPRAZOLE
     Indication: Prophylaxis against gastrointestinal ulcer
     Dosage: UNK
     Route: 065
     Dates: start: 20190621
  9. METOCLOPRAMIDE HYDROCHLORIDE [Concomitant]
     Active Substance: METOCLOPRAMIDE HYDROCHLORIDE
     Indication: Prophylaxis of nausea and vomiting
     Dosage: UNK
     Route: 065
     Dates: start: 20190626
  10. NORUXOL [Concomitant]
     Indication: Intraductal proliferative breast lesion
     Dosage: UNK
     Route: 065
     Dates: start: 20190619
  11. METRONIDAZOLE [Concomitant]
     Active Substance: METRONIDAZOLE
     Indication: Intraductal proliferative breast lesion
     Dosage: UNK
     Route: 065
     Dates: start: 20190619
  12. ACYCLOVIR [Concomitant]
     Active Substance: ACYCLOVIR
     Indication: Herpes virus infection
     Dosage: UNK
     Route: 065
     Dates: start: 20190731, end: 20190829
  13. ALBUMIN HUMAN [Concomitant]
     Active Substance: ALBUMIN HUMAN
     Indication: Hypoalbuminaemia
     Dosage: UNK
     Route: 065
     Dates: start: 20190731, end: 20190808
  14. VALACYCLOVIR [Concomitant]
     Active Substance: VALACYCLOVIR HYDROCHLORIDE
     Indication: Infection
     Dosage: UNK
     Route: 065

REACTIONS (2)
  - Aspartate aminotransferase increased [Recovering/Resolving]
  - Alanine aminotransferase increased [Recovering/Resolving]

NARRATIVE: CASE EVENT DATE: 20190731
